FAERS Safety Report 7676741-X (Version None)
Quarter: 2011Q3

REPORT INFORMATION
  Report Type: 
  Country: None (occurrence: None)
  Receive Date: 20110811
  Receipt Date: 20110810
  Transmission Date: 20111222
  Serious: Yes (Death, Hospitalization, Other)
  Sender: FDA-Public Use
  Company Number: US-BRISTOL-MYERS SQUIBB COMPANY-15682958

PATIENT
  Age: 65 Year
  Sex: Male
  Weight: 50 kg

DRUGS (4)
  1. ACETAMINOPHEN [Concomitant]
     Dates: start: 20110709, end: 20110709
  2. IPILIMUMAB [Suspect]
     Indication: MALIGNANT MELANOMA
     Dosage: LAST DOSE ON 12MAY11
     Route: 042
     Dates: start: 20110308
  3. VANCOMYCIN [Concomitant]
     Dosage: ALSO 09JUL11. INJ
     Dates: start: 20110428, end: 20110709
  4. CEFEPIME [Concomitant]
     Dosage: ALSO 09JUL11.
     Dates: start: 20110428, end: 20110709

REACTIONS (9)
  - SEPSIS [None]
  - ANAEMIA [None]
  - NEOPLASM MALIGNANT [None]
  - PYREXIA [None]
  - OEDEMA [None]
  - URINARY TRACT INFECTION [None]
  - PAIN [None]
  - TACHYCARDIA [None]
  - DECREASED APPETITE [None]
